FAERS Safety Report 6045031-3 (Version None)
Quarter: 2009Q1

REPORT INFORMATION
  Report Type: 
  Country: None (occurrence: None)
  Receive Date: 20090121
  Receipt Date: 20090114
  Transmission Date: 20090719
  Serious: Yes (Hospitalization)
  Sender: FDA-Public Use
  Company Number: DE-BRISTOL-MYERS SQUIBB COMPANY-14471825

PATIENT
  Age: 44 Year
  Sex: Female
  Weight: 88 kg

DRUGS (8)
  1. PACLITAXEL [Suspect]
     Indication: BREAST CANCER
     Dates: start: 20080829, end: 20081017
  2. CYCLOPHOSPHAMIDE [Suspect]
     Indication: BREAST CANCER
     Dosage: DOSAGE-1 PER 2 WEEK FOR 3 WEEKS
     Dates: start: 20080704, end: 20080815
  3. CAPECITABINE [Suspect]
     Indication: BREAST CANCER
     Dosage: ONCE A DAY FOR TWO WEEKS EVERY 3 WEEKS
     Dates: start: 20080829, end: 20081017
  4. EPIRUBICIN [Suspect]
     Indication: BREAST CANCER
     Dates: start: 20080704, end: 20080815
  5. KEVATRIL [Concomitant]
     Dates: start: 20080829, end: 20081017
  6. DEXAMETHASONE [Concomitant]
     Dates: start: 20080829, end: 20081017
  7. LYRICA [Concomitant]
     Dosage: 1 DOSAGEFORM = 75 (UNIT NO SPECIFIED)
     Dates: start: 20080905, end: 20081020
  8. TAVOR [Concomitant]
     Dosage: 1 DOSAGEFORM= 1 TABLET
     Dates: start: 20080925, end: 20081017

REACTIONS (2)
  - GENERAL PHYSICAL CONDITION ABNORMAL [None]
  - TOOTHACHE [None]
